FAERS Safety Report 24412103 (Version 1)
Quarter: 2024Q4

REPORT INFORMATION
  Report Type: Spontaneous
  Country: US (occurrence: US)
  Receive Date: 20241008
  Receipt Date: 20241008
  Transmission Date: 20250115
  Serious: Yes (Life-Threatening, Hospitalization)
  Sender: MYLAN
  Company Number: US-MYLANLABS-2024M1090665

PATIENT
  Age: 78 Year
  Sex: Male

DRUGS (2)
  1. APIXABAN [Suspect]
     Active Substance: APIXABAN
     Indication: Cerebrovascular accident
     Dosage: UNK
     Route: 065
  2. APIXABAN [Suspect]
     Active Substance: APIXABAN
     Indication: Prophylaxis

REACTIONS (6)
  - Pericardial effusion [Recovered/Resolved]
  - Haemorrhage [Recovered/Resolved]
  - Cardiac tamponade [Unknown]
  - Respiratory distress [Unknown]
  - Multiple organ dysfunction syndrome [Unknown]
  - Obstructive shock [Unknown]
